FAERS Safety Report 21682360 (Version 3)
Quarter: 2022Q4

REPORT INFORMATION
  Report Type: Spontaneous
  Country: AU (occurrence: None)
  Receive Date: 20221205
  Receipt Date: 20221213
  Transmission Date: 20230113
  Serious: Yes (Other)
  Sender: FDA-Public Use
  Company Number: AU-ROCHE-3229685

PATIENT
  Sex: Male

DRUGS (17)
  1. RITUXIMAB [Suspect]
     Active Substance: RITUXIMAB
     Indication: Follicular lymphoma
     Route: 042
     Dates: start: 20181218, end: 20190508
  2. RITUXIMAB [Suspect]
     Active Substance: RITUXIMAB
     Route: 042
     Dates: start: 20200926, end: 20210107
  3. RITUXIMAB [Suspect]
     Active Substance: RITUXIMAB
     Route: 042
     Dates: start: 20211010, end: 20220816
  4. BENDAMUSTINE [Suspect]
     Active Substance: BENDAMUSTINE
     Indication: Follicular lymphoma
     Route: 065
     Dates: start: 20181218, end: 20190508
  5. CYCLOPHOSPHAMIDE [Suspect]
     Active Substance: CYCLOPHOSPHAMIDE
     Indication: Follicular lymphoma
     Route: 065
     Dates: start: 20200926, end: 20210107
  6. DOXORUBICIN [Suspect]
     Active Substance: DOXORUBICIN
     Indication: Follicular lymphoma
     Route: 065
     Dates: start: 20200926, end: 20210107
  7. VINCRISTINE [Suspect]
     Active Substance: VINCRISTINE
     Indication: Follicular lymphoma
     Route: 065
     Dates: start: 20200926, end: 20210107
  8. PREDNISOLONE [Suspect]
     Active Substance: PREDNISOLONE
     Indication: Follicular lymphoma
     Route: 065
     Dates: start: 20200926, end: 20210107
  9. IDELALISIB [Suspect]
     Active Substance: IDELALISIB
     Indication: Follicular lymphoma
     Route: 065
     Dates: start: 20220823, end: 20221201
  10. LENALIDOMIDE [Suspect]
     Active Substance: LENALIDOMIDE
     Indication: Follicular lymphoma
     Route: 065
     Dates: start: 20211010, end: 20220816
  11. LUTETIUM (LU177) LILOTOMAB SATETRAXETAN [Suspect]
     Active Substance: LUTETIUM (LU177) LILOTOMAB SATETRAXETAN
     Indication: Follicular lymphoma
     Route: 065
     Dates: start: 20210622, end: 20210928
  12. ASPIRIN [Concomitant]
     Active Substance: ASPIRIN
  13. CHOLECALCIFEROL [Concomitant]
     Active Substance: CHOLECALCIFEROL
  14. DOTHIEPIN [Concomitant]
     Active Substance: DOTHIEPIN\DOTHIEPIN HYDROCHLORIDE
  15. HYDROXYCHLOROQUINE [Concomitant]
     Active Substance: HYDROXYCHLOROQUINE
  16. ESOMEPRAZOLE [Concomitant]
     Active Substance: ESOMEPRAZOLE
  17. ALBUTEROL [Concomitant]
     Active Substance: ALBUTEROL

REACTIONS (1)
  - Disease progression [Unknown]
